FAERS Safety Report 7811771-6 (Version None)
Quarter: 2011Q4

REPORT INFORMATION
  Report Type: 
  Country: None (occurrence: None)
  Receive Date: 20111013
  Receipt Date: 20110929
  Transmission Date: 20120403
  Serious: Yes (Other)
  Sender: FDA-Public Use
  Company Number: US-ELI_LILLY_AND_COMPANY-US201106006093

PATIENT
  Sex: Female

DRUGS (4)
  1. VITAMIN TAB [Concomitant]
  2. FORTEO [Suspect]
     Indication: OSTEOPOROSIS
     Dosage: 20 UG, QD
     Route: 065
     Dates: start: 20110301
  3. FORTEO [Suspect]
     Dosage: 20 UG, QD
     Route: 065
  4. FORTEO [Suspect]
     Dosage: 20 UG, QD
     Route: 065

REACTIONS (6)
  - DIZZINESS [None]
  - MUSCLE SPASMS [None]
  - INJECTION SITE REACTION [None]
  - BURNING SENSATION [None]
  - FATIGUE [None]
  - EMPHYSEMA [None]
